FAERS Safety Report 6432126-5 (Version None)
Quarter: 2009Q4

REPORT INFORMATION
  Report Type: 
  Country: None (occurrence: None)
  Receive Date: 20091105
  Receipt Date: 20091023
  Transmission Date: 20100525
  Serious: Yes (Other)
  Sender: FDA-Public Use
  Company Number: 091029-0001144

PATIENT
  Age: 20 Year
  Sex: Female

DRUGS (4)
  1. ELSPAR [Suspect]
     Indication: MYELOID LEUKAEMIA
  2. METHOTREXATE [Suspect]
     Indication: MYELOID LEUKAEMIA
     Dosage: IV
     Route: 042
  3. VINCRISTINE [Suspect]
     Indication: MYELOID LEUKAEMIA
  4. DOXORUBICIN HCL [Suspect]
     Indication: MYELOID LEUKAEMIA

REACTIONS (1)
  - REVERSIBLE POSTERIOR LEUKOENCEPHALOPATHY SYNDROME [None]
